FAERS Safety Report 5493103-4 (Version None)
Quarter: 2007Q4

REPORT INFORMATION
  Report Type: 
  Country: None (occurrence: None)
  Receive Date: 20071023
  Receipt Date: 20071010
  Transmission Date: 20080405
  Serious: Yes (Hospitalization)
  Sender: FDA-Public Use
  Company Number: FR-JNJFOC-20071004978

PATIENT
  Sex: Female

DRUGS (7)
  1. IXPRIM [Suspect]
     Indication: MUSCLE STRAIN
     Dosage: 975 MG AND 112.5 MG
     Route: 048
     Dates: start: 20070327, end: 20070406
  2. KETOPROFEN [Suspect]
     Indication: MUSCLE STRAIN
     Route: 048
  3. MYOLASTAN [Suspect]
     Indication: MUSCLE STRAIN
     Route: 048
  4. SERETIDE [Concomitant]
     Route: 055
  5. NASACORT [Concomitant]
     Route: 055
  6. CETIRIZINE HCL [Concomitant]
     Route: 065
  7. GINKOR FORT [Concomitant]
     Route: 065

REACTIONS (1)
  - RHABDOMYOLYSIS [None]
